FAERS Safety Report 11862854 (Version 2)
Quarter: 2016Q1

REPORT INFORMATION
  Report Type: Spontaneous
  Country: US (occurrence: US)
  Receive Date: 20151223
  Receipt Date: 20160129
  Transmission Date: 20160526
  Serious: Yes (Death, Hospitalization)
  Sender: FDA-Public Use
  Company Number: US-BEH-2015056957

PATIENT
  Sex: Male
  Weight: 77 kg

DRUGS (33)
  1. ZEMAIRA [Suspect]
     Active Substance: .ALPHA.1-PROTEINASE INHIBITOR HUMAN
     Indication: OBSTRUCTIVE AIRWAYS DISORDER
     Route: 042
     Dates: start: 20050628, end: 20160108
  2. CIPRO [Concomitant]
     Active Substance: CIPROFLOXACIN HYDROCHLORIDE
  3. LORATADINE. [Concomitant]
     Active Substance: LORATADINE
  4. CITRACAL [Concomitant]
     Active Substance: CALCIUM CITRATE
  5. POTASSIUM [Concomitant]
     Active Substance: POTASSIUM
  6. FLUOROURACIL. [Concomitant]
     Active Substance: FLUOROURACIL
  7. RAMIPRIL. [Concomitant]
     Active Substance: RAMIPRIL
  8. QUINIDINE [Concomitant]
     Active Substance: QUINIDINE
  9. DEXILANT [Concomitant]
     Active Substance: DEXLANSOPRAZOLE
  10. ZEMAIRA [Suspect]
     Active Substance: .ALPHA.1-PROTEINASE INHIBITOR HUMAN
     Indication: OBSTRUCTIVE AIRWAYS DISORDER
     Route: 042
     Dates: start: 20050628, end: 20160108
  11. DIPHENHYDRAMINE. [Concomitant]
     Active Substance: DIPHENHYDRAMINE
  12. SODIUM CHLORIDE. [Concomitant]
     Active Substance: SODIUM CHLORIDE
  13. GLUCOSAMINE [Concomitant]
     Active Substance: GLUCOSAMINE
  14. GUAIFENESIN. [Concomitant]
     Active Substance: GUAIFENESIN
  15. NYSTATIN. [Concomitant]
     Active Substance: NYSTATIN
  16. VITAMIN B [Concomitant]
     Active Substance: VITAMIN B
  17. MULTIVITAMIN [Concomitant]
     Active Substance: VITAMINS
  18. SPIRONOLACTONE. [Concomitant]
     Active Substance: SPIRONOLACTONE
  19. SINGULAIR [Concomitant]
     Active Substance: MONTELUKAST SODIUM
  20. FLOMAX [Concomitant]
     Active Substance: TAMSULOSIN HYDROCHLORIDE
  21. AVODART [Concomitant]
     Active Substance: DUTASTERIDE
  22. LACTULOSE. [Concomitant]
     Active Substance: LACTULOSE
  23. STERILE WATER [Concomitant]
     Active Substance: WATER
  24. EPIPEN [Concomitant]
     Active Substance: EPINEPHRINE
  25. LASIX [Concomitant]
     Active Substance: FUROSEMIDE
  26. CIALIS [Concomitant]
     Active Substance: TADALAFIL
  27. ELLIPTA [Concomitant]
  28. ASTELIN [Concomitant]
     Active Substance: AZELASTINE HYDROCHLORIDE
  29. OXYGEN. [Concomitant]
     Active Substance: OXYGEN
  30. QUINIDINE [Concomitant]
     Active Substance: QUINIDINE
  31. XOPENEX [Concomitant]
     Active Substance: LEVALBUTEROL HYDROCHLORIDE
  32. LMX [Concomitant]
     Active Substance: LIDOCAINE
  33. VITAMIN D [Concomitant]
     Active Substance: CHOLECALCIFEROL

REACTIONS (4)
  - Chronic obstructive pulmonary disease [Fatal]
  - Hepatic failure [Fatal]
  - Chronic hepatic failure [Unknown]
  - Respiratory failure [Fatal]
